FAERS Safety Report 7146878 (Version 36)
Quarter: 2014Q1

REPORT INFORMATION
  Report Type: Report from Study
  Country: CA (occurrence: CA)
  Receive Date: 20091012
  Receipt Date: 20140217
  Transmission Date: 20141002
  Serious: Yes (Hospitalization, Other)
  Sender: FDA-Public Use
  Company Number: PHMT2006CA01168

PATIENT
  Age: 64 Year
  Sex: Female

DRUGS (12)
  1. SANDOSTATIN LAR [Suspect]
     Indication: GLUCAGONOMA
     Dosage: 30 MG, EVERY 4 WEEKS
     Route: 030
     Dates: start: 20030120
  2. SANDOSTATIN LAR [Suspect]
     Dosage: 30 MG, BIW
     Route: 030
  3. SANDOSTATIN LAR [Suspect]
     Dosage: 30 MG, ONCE A MONTH
     Route: 030
  4. SANDOSTATIN LAR [Suspect]
     Dosage: 30 MG, EVERY 2 WEEKS
     Route: 030
  5. 5-FU [Concomitant]
     Dosage: UNK UKN, UNK
  6. ALTACE [Concomitant]
     Dosage: UNK UKN, UNK
  7. CHEMOTHERAPEUTICS [Concomitant]
     Dosage: UNK UKN, UNK
  8. COUMADIN [Concomitant]
     Dosage: UNK UKN, UNK
  9. INSULIN [Concomitant]
     Dosage: UNK UKN, UNK
  10. PAXIL [Concomitant]
     Dosage: UNK UKN, UNK
  11. ZYPREXA [Concomitant]
     Dosage: UNK UKN, UNK
  12. SIMVASTATIN [Concomitant]
     Dosage: UNK UKN, UNK

REACTIONS (33)
  - Urinary tract infection [Unknown]
  - Urosepsis [Unknown]
  - Dehydration [Unknown]
  - Hypoglycaemia [Unknown]
  - Platelet count decreased [Unknown]
  - Venous stenosis [Unknown]
  - Haemoglobin decreased [Unknown]
  - Lumbar vertebral fracture [Unknown]
  - Pain [Unknown]
  - Back pain [Not Recovered/Not Resolved]
  - Mobility decreased [Unknown]
  - Infection [Unknown]
  - Back injury [Unknown]
  - Dyspnoea [Unknown]
  - Neoplasm [Unknown]
  - Malignant neoplasm progression [Unknown]
  - Abdominal discomfort [Unknown]
  - Pruritus generalised [Unknown]
  - White blood cell count decreased [Unknown]
  - Lymphocyte count decreased [Unknown]
  - Neutrophil count decreased [Unknown]
  - Chest pain [Not Recovered/Not Resolved]
  - Blood pressure increased [Unknown]
  - Stomatitis [Unknown]
  - Nasopharyngitis [Unknown]
  - Tooth fracture [Unknown]
  - Syncope [Unknown]
  - Blood pressure decreased [Unknown]
  - Decreased appetite [Unknown]
  - Blood glucose fluctuation [Unknown]
  - Dizziness [Not Recovered/Not Resolved]
  - Diarrhoea [Unknown]
  - Heart rate increased [Unknown]
